FAERS Safety Report 23022145 (Version 2)
Quarter: 2024Q1

REPORT INFORMATION
  Report Type: Spontaneous
  Country: VN (occurrence: VN)
  Receive Date: 20231003
  Receipt Date: 20240227
  Transmission Date: 20240410
  Serious: Yes (Other)
  Sender: FDA-Public Use
  Company Number: VN-002147023-NVSC2023VN151307

PATIENT
  Sex: Female

DRUGS (3)
  1. DOCETAXEL [Suspect]
     Active Substance: DOCETAXEL\DOCETAXEL ANHYDROUS
     Indication: Breast cancer metastatic
     Dosage: UNK
     Route: 065
  2. LETROZOLE [Suspect]
     Active Substance: LETROZOLE
     Indication: Breast cancer metastatic
     Dosage: UNK
     Route: 065
  3. RIBOCICLIB [Suspect]
     Active Substance: RIBOCICLIB
     Indication: Breast cancer metastatic
     Dosage: 600 MG, QD
     Route: 065

REACTIONS (19)
  - Granulocytopenia [Unknown]
  - Hepatic necrosis [Unknown]
  - Breast cancer metastatic [Unknown]
  - Malignant neoplasm progression [Unknown]
  - Metastases to lung [Unknown]
  - Pneumothorax [Unknown]
  - Metastases to lymph nodes [Unknown]
  - Metastases to bone [Unknown]
  - Metastases to liver [Unknown]
  - Erythema [Recovered/Resolved]
  - Musculoskeletal chest pain [Recovering/Resolving]
  - Hypoaesthesia [Recovering/Resolving]
  - Decreased appetite [Unknown]
  - Therapeutic response decreased [Unknown]
  - Pleural effusion [Unknown]
  - Chest pain [Unknown]
  - Arthralgia [Unknown]
  - Dyspnoea exertional [Unknown]
  - Fatigue [Unknown]

NARRATIVE: CASE EVENT DATE: 20220801
